FAERS Safety Report 9351371 (Version 2)
Quarter: 2013Q3

REPORT INFORMATION
  Report Type: Spontaneous
  Country: US (occurrence: US)
  Receive Date: 20130617
  Receipt Date: 20130702
  Transmission Date: 20140515
  Serious: Yes (Other)
  Sender: FDA-Public Use
  Company Number: US-PFIZER INC-2013176447

PATIENT
  Age: 77 Year
  Sex: Female

DRUGS (2)
  1. XELJANZ [Suspect]
     Dosage: 5 MG, 2X/DAY
     Route: 048
     Dates: start: 201303
  2. CIMZIA [Suspect]
     Dosage: UNK

REACTIONS (3)
  - Cardiac disorder [Unknown]
  - Oral herpes [Recovered/Resolved]
  - Rash [Unknown]
